FAERS Safety Report 13858516 (Version 5)
Quarter: 2017Q4

REPORT INFORMATION
  Report Type: Spontaneous
  Country: JP (occurrence: JP)
  Receive Date: 20170811
  Receipt Date: 20171226
  Transmission Date: 20180320
  Serious: Yes (Death, Life-Threatening, Hospitalization, Disabling, Other)
  Sender: FDA-Public Use
  Company Number: JP-009507513-1708JPN001271J

PATIENT
  Age: 59 Year
  Sex: Male
  Weight: 71 kg

DRUGS (4)
  1. DECADRON [Concomitant]
     Active Substance: DEXAMETHASONE
     Dosage: 1 MG, UNK
     Route: 065
     Dates: start: 20170630, end: 20170712
  2. KEYTRUDA [Suspect]
     Active Substance: PEMBROLIZUMAB
     Indication: LUNG ADENOCARCINOMA
     Dosage: 200 MG, Q3W
     Route: 041
     Dates: start: 20170720, end: 20170720
  3. DECADRON [Concomitant]
     Active Substance: DEXAMETHASONE
     Dosage: 2 MG, UNK
     Route: 065
     Dates: start: 20170619, end: 20170629
  4. DECADRON [Concomitant]
     Active Substance: DEXAMETHASONE
     Dosage: 0.5 MG, UNK
     Route: 065
     Dates: start: 20170713, end: 20170719

REACTIONS (9)
  - Peritonitis [Unknown]
  - Disseminated intravascular coagulation [Unknown]
  - Dysgeusia [Unknown]
  - Ileus [Unknown]
  - Venous thrombosis [Unknown]
  - Gastrointestinal perforation [Fatal]
  - Interstitial lung disease [Not Recovered/Not Resolved]
  - Encephalitis [Recovered/Resolved]
  - Hypothyroidism [Not Recovered/Not Resolved]

NARRATIVE: CASE EVENT DATE: 2017
